FAERS Safety Report 4714810-4 (Version None)
Quarter: 2005Q3

REPORT INFORMATION
  Report Type: 
  Country: None (occurrence: None)
  Receive Date: 20050714
  Receipt Date: 20050714
  Transmission Date: 20060218
  Serious: Yes (Other)
  Sender: FDA-Public Use
  Company Number: None

PATIENT
  Sex: Female
  Weight: 78 kg

DRUGS (13)
  1. MITOMYCIN [Suspect]
     Indication: ANAL CANCER
     Dosage: 10MG/M2 IV BOLUS ON DAYS 1 AND 29
     Route: 042
     Dates: start: 20050314, end: 20050314
  2. FLUOROURACIL [Suspect]
     Dosage: SEE IMAGE
     Route: 042
     Dates: start: 20050314, end: 20050318
  3. RADIATION [Suspect]
     Dosage: DAILY DOSE OF 1.8GY, 5 DAYS PER WEEK TO A DOSE OF 45 GY IN 25FX IN 5 TO 6.5 WEEKS
     Route: 050
  4. ARTHROTEC [Concomitant]
  5. ASPIRIN [Concomitant]
  6. LABETALOL [Concomitant]
  7. LECITHIN [Concomitant]
  8. LEXAPRO [Concomitant]
  9. MULTI-VITAMINS [Concomitant]
  10. OCUVITE [Concomitant]
  11. DOCUSATE SODIUM [Concomitant]
  12. OXYBUTYNIN [Concomitant]
  13. SYNTHROID [Concomitant]

REACTIONS (15)
  - ALANINE AMINOTRANSFERASE INCREASED [None]
  - BLOOD GLUCOSE INCREASED [None]
  - BLOOD POTASSIUM DECREASED [None]
  - BLOOD PRESSURE SYSTOLIC DECREASED [None]
  - BODY TEMPERATURE INCREASED [None]
  - BOWEL SOUNDS ABNORMAL [None]
  - COMPUTERISED TOMOGRAM ABDOMEN ABNORMAL [None]
  - DEHYDRATION [None]
  - DIARRHOEA [None]
  - DRY MOUTH [None]
  - LUNG INFILTRATION [None]
  - NAUSEA [None]
  - PLATELET COUNT DECREASED [None]
  - VOMITING [None]
  - WHITE BLOOD CELL COUNT DECREASED [None]
